FAERS Safety Report 24186451 (Version 1)
Quarter: 2024Q3

REPORT INFORMATION
  Report Type: Report from Study
  Country: CN (occurrence: CN)
  Receive Date: 20240808
  Receipt Date: 20240808
  Transmission Date: 20241017
  Serious: Yes (Other)
  Sender: UCB
  Company Number: CN-UCBSA-2024038898

PATIENT

DRUGS (4)
  1. KEPPRA [Suspect]
     Active Substance: LEVETIRACETAM
     Indication: Post stroke epilepsy
     Dosage: 0.25 GRAM, 2X/DAY (BID)
  2. KEPPRA [Suspect]
     Active Substance: LEVETIRACETAM
     Indication: Off label use
     Dosage: 0.5 G EACH TIME ACCORDING TO THE PATIENT^S SYMPTOMS AND CONDITION AFTER ONE WEEK
  3. VALPROATE SODIUM [Concomitant]
     Active Substance: VALPROATE SODIUM
     Indication: Post stroke epilepsy
     Dosage: 0.4 GRAM, 2X/DAY (BID)
     Route: 048
  4. VALPROATE SODIUM [Concomitant]
     Active Substance: VALPROATE SODIUM
     Dosage: 0.6G PER TIME AFTER ONE WEEK
     Route: 048

REACTIONS (6)
  - Anaphylactic reaction [Unknown]
  - Renal function test abnormal [Unknown]
  - Nervous system disorder [Unknown]
  - Liver function test abnormal [Unknown]
  - Abdominal discomfort [Unknown]
  - Off label use [Unknown]
